FAERS Safety Report 8898423 (Version 2)
Quarter: 2013Q1

REPORT INFORMATION
  Report Type: Spontaneous
  Country: US (occurrence: US)
  Receive Date: 20121109
  Receipt Date: 20130124
  Transmission Date: 20140127
  Serious: No
  Sender: FDA-Public Use
  Company Number: US-009507513-1211USA002442

PATIENT
  Age: 72 Year
  Sex: Female

DRUGS (3)
  1. JANUVIA [Suspect]
     Indication: TYPE 2 DIABETES MELLITUS
     Dosage: UNK
     Route: 048
     Dates: start: 201210, end: 2012
  2. GLYBURIDE [Concomitant]
  3. METFORMIN [Concomitant]

REACTIONS (1)
  - Vomiting [Unknown]
